FAERS Safety Report 24732578 (Version 1)
Quarter: 2024Q4

REPORT INFORMATION
  Report Type: Report from Study
  Country: CA (occurrence: CA)
  Receive Date: 20241213
  Receipt Date: 20241213
  Transmission Date: 20250114
  Serious: Yes (Other)
  Sender: JOHNSON AND JOHNSON
  Company Number: CA-JNJFOC-20241219122

PATIENT
  Age: 43 Year
  Sex: Female

DRUGS (2)
  1. REMICADE [Suspect]
     Active Substance: INFLIXIMAB
     Indication: Ankylosing spondylitis
     Route: 041
     Dates: start: 20221116
  2. METHOTREXATE [Concomitant]
     Active Substance: METHOTREXATE
     Dosage: WEEKILY

REACTIONS (1)
  - Malignant melanoma [Recovering/Resolving]

NARRATIVE: CASE EVENT DATE: 20241128
